FAERS Safety Report 15183660 (Version 1)
Quarter: 2018Q3

REPORT INFORMATION
  Report Type: Report from Study
  Country: DK (occurrence: DK)
  Receive Date: 20180723
  Receipt Date: 20180723
  Transmission Date: 20181010
  Serious: Yes (Death)
  Sender: FDA-Public Use
  Company Number: DK-PFIZER INC-2018291739

PATIENT

DRUGS (5)
  1. NIZAX [Concomitant]
     Active Substance: NIZATIDINE
     Indication: PREMEDICATION
     Dosage: 100 MG, UNK (PREMEDICATION 30 MIN PRIOR TO ADMINISTRATION OF PACLITAXEL)
     Route: 042
  2. PACLITAXEL. [Suspect]
     Active Substance: PACLITAXEL
     Indication: SQUAMOUS CELL CARCINOMA
     Dosage: 175 MG/M2, CYCLIC(ONCE EVERY THIRD WEEK, OVER 3 H, DAY 1)
     Route: 042
  3. CAPECITABINE. [Suspect]
     Active Substance: CAPECITABINE
     Indication: SQUAMOUS CELL CARCINOMA
     Dosage: 825 MG/M2/DOSE, CYCLIC (2X/D FOR 2WEEKS/ D 1?14) WITH 200 ML WATER TAKEN LESS THAN 30 MIN AFTER MEAL
     Route: 048
  4. DEXAMETHAZONE [Concomitant]
     Active Substance: DEXAMETHASONE
     Indication: PREMEDICATION
     Dosage: 10 MG, UNK (PREMEDICATION 30 MIN PRIOR TO ADMINISTRATION OF PACLITAXEL)
     Route: 042
  5. TAVEGYL [Concomitant]
     Active Substance: CLEMASTINE FUMARATE
     Indication: PREMEDICATION
     Dosage: 2 MG, UNK (PREMEDICATION 30 MIN PRIOR TO ADMINISTRATION OF PACLITAXEL)
     Route: 042

REACTIONS (1)
  - Gastrointestinal infection [Fatal]
